FAERS Safety Report 9170859 (Version 5)
Quarter: 2013Q2

REPORT INFORMATION
  Report Type: Spontaneous
  Country: IL (occurrence: None)
  Receive Date: 20130311
  Receipt Date: 20130619
  Transmission Date: 20140414
  Serious: Yes (Hospitalization)
  Sender: FDA-Public Use
  Company Number: 2013-0970

PATIENT
  Age: 55 Year
  Sex: Female
  Weight: 84 kg

DRUGS (3)
  1. SOMATULINE [Suspect]
     Indication: NEUROENDOCRINE TUMOUR
     Dosage: 120 MG (120 MG, NOT REPORTED), UNKNOWN
     Dates: start: 20101116
  2. TYSABRI (NATALIZUMAB) [Concomitant]
  3. PROVIGIL (MODAFINIL) [Concomitant]

REACTIONS (3)
  - Chronic myeloid leukaemia [None]
  - Blood alkaline phosphatase increased [None]
  - Pyrexia [None]
